FAERS Safety Report 9363707 (Version 1)
Quarter: 2013Q2

REPORT INFORMATION
  Report Type: Spontaneous
  Country: US (occurrence: None)
  Receive Date: 20130618
  Receipt Date: 20130618
  Transmission Date: 20140414
  Serious: Yes (Hospitalization)
  Sender: FDA-Public Use
  Company Number: AUR-APL-2013-04989

PATIENT
  Age: 48 Year
  Sex: Female
  Weight: 105.2 kg

DRUGS (8)
  1. SIMVASTATIN (SIMVASTATIN) [Suspect]
     Indication: PRODUCT USED FOR UNKNOWN INDICATION
     Dates: start: 201212
  2. ENBREL [Suspect]
     Indication: RHEUMATOID ARTHRITIS
     Dates: end: 201212
  3. HUMIRA [Suspect]
     Indication: RHEUMATOID ARTHRITIS
     Dosage: 2.8571 MG (40 MG, 1 IN 2 WK), UNKNOWN
     Dates: start: 2003, end: 2009
  4. LEFLUNOMIDE [Suspect]
     Indication: RHEUMATOID ARTHRITIS
  5. PLAQUENIL [Suspect]
     Indication: RHEUMATOID ARTHRITIS
  6. CARVEDILOL (CARVEDILOL) [Concomitant]
  7. LISINOPRIL (LISINOPRIL) [Concomitant]
  8. BABY ASPIRIN (ACETYLSALICYLIC ACID) [Concomitant]

REACTIONS (7)
  - Drug ineffective [None]
  - Pain [None]
  - Exostosis [None]
  - Incision site infection [None]
  - Dyspnoea [None]
  - Intervertebral disc degeneration [None]
  - Cardiac valve disease [None]
